FAERS Safety Report 14700348 (Version 1)
Quarter: 2018Q1

REPORT INFORMATION
  Report Type: Spontaneous
  Country: US (occurrence: US)
  Receive Date: 20180330
  Receipt Date: 20180330
  Transmission Date: 20180509
  Serious: Yes (Other)
  Sender: FDA-Public Use
  Company Number: None

PATIENT
  Age: 67 Year
  Sex: Female
  Weight: 51.26 kg

DRUGS (8)
  1. TAMOXIFEN 20MG TAB [Suspect]
     Active Substance: TAMOXIFEN
     Indication: BREAST CANCER
     Dosage: 1 PILL 1 DAILY BY MOUTH
     Route: 048
     Dates: start: 20131226
  2. LEVOTHYROXINE. [Concomitant]
     Active Substance: LEVOTHYROXINE
  3. ASPIRIN. [Concomitant]
     Active Substance: ASPIRIN
  4. MAGNESIUM [Concomitant]
     Active Substance: MAGNESIUM
  5. MULTIVITAMIN [Concomitant]
     Active Substance: VITAMINS
  6. CALTRATE [Concomitant]
     Active Substance: CALCIUM CARBONATE
  7. PRESERVISION [Concomitant]
     Active Substance: MINERALS\VITAMINS
  8. TAMOXIFEN 20MG TAB [Suspect]
     Active Substance: TAMOXIFEN
     Indication: ALOPECIA
     Dosage: 1 PILL 1 DAILY BY MOUTH
     Route: 048
     Dates: start: 20131226

REACTIONS (2)
  - Madarosis [None]
  - Alopecia [None]

NARRATIVE: CASE EVENT DATE: 20140201
